FAERS Safety Report 4268174-3 (Version None)
Quarter: 2004Q1

REPORT INFORMATION
  Report Type: 
  Country: None (occurrence: None)
  Receive Date: 20040109
  Receipt Date: 20011002
  Transmission Date: 20041129
  Serious: Yes (Hospitalization, Disabling, Other)
  Sender: FDA-Public Use
  Company Number: WAES 01100374

PATIENT
  Age: 49 Year
  Sex: Male
  Weight: 80 kg

DRUGS (2)
  1. VIOXX [Suspect]
     Route: 048
     Dates: start: 19990601, end: 20010101
  2. VIOXX [Suspect]
     Indication: ARTHRALGIA
     Route: 048
     Dates: start: 19990601, end: 20010101

REACTIONS (16)
  - ANTINUCLEAR ANTIBODY POSITIVE [None]
  - BLOOD PRESSURE DIASTOLIC INCREASED [None]
  - CEREBROVASCULAR ACCIDENT [None]
  - EXTENSOR PLANTAR RESPONSE [None]
  - FATIGUE [None]
  - FEELING ABNORMAL [None]
  - FLANK PAIN [None]
  - HAEMATURIA [None]
  - HYPERREFLEXIA [None]
  - HYPOKALAEMIA [None]
  - LACUNAR INFARCTION [None]
  - MUSCULAR WEAKNESS [None]
  - NEPHROLITHIASIS [None]
  - PALPITATIONS [None]
  - SENSATION OF HEAVINESS [None]
  - VERTIGO [None]
